FAERS Safety Report 7588019-3 (Version None)
Quarter: 2011Q3

REPORT INFORMATION
  Report Type: 
  Country: None (occurrence: None)
  Receive Date: 20110705
  Receipt Date: 20110629
  Transmission Date: 20111222
  Serious: No
  Sender: FDA-Public Use
  Company Number: US-PFIZER INC-2011145996

PATIENT
  Sex: Female

DRUGS (2)
  1. PANTOPRAZOLE [Suspect]
     Indication: BARRETT'S OESOPHAGUS
     Dosage: UNK
     Dates: start: 20110101, end: 20110619
  2. PROTONIX [Suspect]
     Indication: BARRETT'S OESOPHAGUS
     Dosage: UNK MG, 1X/DAY
     Route: 048

REACTIONS (3)
  - HEART RATE INCREASED [None]
  - DIARRHOEA [None]
  - ABDOMINAL PAIN UPPER [None]
